FAERS Safety Report 7563008-3 (Version None)
Quarter: 2011Q2

REPORT INFORMATION
  Report Type: 
  Country: None (occurrence: None)
  Receive Date: 20110622
  Receipt Date: 20110613
  Transmission Date: 20111010
  Serious: Yes (Hospitalization)
  Sender: FDA-Public Use
  Company Number: US-ACTELION-A-US2011-49915

PATIENT

DRUGS (22)
  1. VESICARE [Concomitant]
  2. LABETALOL HCL [Concomitant]
  3. ELAVIL [Concomitant]
  4. ELMIRON [Concomitant]
  5. PRIMIDONE [Concomitant]
  6. PLAVIX [Concomitant]
  7. SYNTHROID [Concomitant]
  8. VYTORIN [Concomitant]
  9. POTASSIUM CHLORIDE [Concomitant]
  10. PREMARIN [Concomitant]
  11. LASIX [Concomitant]
  12. NITROGLYCERIN [Concomitant]
  13. NEXIUM [Concomitant]
  14. VENTOLIN HFA [Concomitant]
  15. ISOSORBIDE [Concomitant]
  16. KADIAN [Concomitant]
  17. TRACLEER [Suspect]
     Indication: PULMONARY ARTERIAL HYPERTENSION
     Dosage: 125 MG, BID
     Route: 048
  18. ANTIVERT [Concomitant]
  19. MAGNESIUM [Concomitant]
  20. ASPIRIN [Concomitant]
  21. FLUOXETINE HCL [Concomitant]
  22. FLEXERIL [Concomitant]

REACTIONS (5)
  - FALL [None]
  - MENTAL STATUS CHANGES [None]
  - CONFUSIONAL STATE [None]
  - AMNESIA [None]
  - CYSTITIS INTERSTITIAL [None]
